FAERS Safety Report 6089621-0 (Version None)
Quarter: 2009Q1

REPORT INFORMATION
  Report Type: 
  Country: None (occurrence: None)
  Receive Date: 20090219
  Receipt Date: 20090219
  Transmission Date: 20090719
  Serious: Yes (Hospitalization)
  Sender: FDA-Public Use
  Company Number: None

PATIENT
  Sex: Male
  Weight: 77.1 kg

DRUGS (3)
  1. ELOXATIN [Suspect]
     Dosage: 97 MG
     Dates: end: 20090112
  2. FLUOROURACIL [Suspect]
     Dosage: 4925 MG
     Dates: end: 20090114
  3. LEUCOVORIN CALCIUM [Suspect]
     Dosage: 775 MG
     Dates: end: 20090112

REACTIONS (7)
  - DEEP VEIN THROMBOSIS [None]
  - EFFUSION [None]
  - IMPAIRED WORK ABILITY [None]
  - LEUKOCYTOSIS [None]
  - PNEUMONITIS [None]
  - TACHYCARDIA [None]
  - UPPER RESPIRATORY TRACT INFECTION [None]
